FAERS Safety Report 5690205-4 (Version None)
Quarter: 2008Q2

REPORT INFORMATION
  Report Type: 
  Country: None (occurrence: None)
  Receive Date: 20080401
  Receipt Date: 20080321
  Transmission Date: 20081010
  Serious: Yes (Other)
  Sender: FDA-Public Use
  Company Number: US-SANOFI-SYNTHELABO-A03200801194

PATIENT
  Sex: Male

DRUGS (2)
  1. ZYRTEC [Concomitant]
     Indication: DRUG USE FOR UNKNOWN INDICATION
     Dosage: UNK
     Route: 065
  2. AMBIEN [Suspect]
     Indication: INSOMNIA
     Route: 048

REACTIONS (2)
  - ROAD TRAFFIC ACCIDENT [None]
  - SOMNAMBULISM [None]
